FAERS Safety Report 6969454-0 (Version None)
Quarter: 2010Q3

REPORT INFORMATION
  Report Type: 
  Country: None (occurrence: None)
  Receive Date: 20100902
  Receipt Date: 20100827
  Transmission Date: 20110219
  Serious: Yes (Hospitalization)
  Sender: FDA-Public Use
  Company Number: 2010GW000686

PATIENT
  Age: 79 Year
  Sex: Male

DRUGS (1)
  1. ALDARA [Suspect]
     Indication: ACTINIC KERATOSIS
     Dosage: 5 PCT; QD; TOP
     Route: 061

REACTIONS (4)
  - FALL [None]
  - FALSE POSITIVE INVESTIGATION RESULT [None]
  - LUPUS-LIKE SYNDROME [None]
  - MYOCARDIAL INFARCTION [None]
